FAERS Safety Report 19972195 (Version 1)
Quarter: 2021Q4

REPORT INFORMATION
  Report Type: Other
  Country: RU (occurrence: RU)
  Receive Date: 20211020
  Receipt Date: 20211020
  Transmission Date: 20220303
  Serious: Yes (Other)
  Sender: FDA-Public Use
  Company Number: RU-ROCHE-2932888

PATIENT

DRUGS (5)
  1. MYCOPHENOLATE MOFETIL [Suspect]
     Active Substance: MYCOPHENOLATE MOFETIL
     Indication: Allogenic stem cell transplantation
     Dosage: MMF 30 MG/KG/DAY STARTING ON DAY +5.
     Route: 065
  2. FLUDARABINE [Suspect]
     Active Substance: FLUDARABINE PHOSPHATE
     Indication: Allogenic stem cell transplantation
     Dosage: 180?MG/M
     Route: 065
  3. BUSULFAN [Suspect]
     Active Substance: BUSULFAN
     Indication: Allogenic stem cell transplantation
     Dosage: 12 TO 14 MG/KG
     Route: 065
  4. BENDAMUSTINE [Suspect]
     Active Substance: BENDAMUSTINE
     Indication: Allogenic stem cell transplantation
     Dosage: A 1-HOUR INTRAVENOUS . INFUSION ON DAYS +3 AND +4.
     Route: 042
  5. TACROLIMUS [Suspect]
     Active Substance: TACROLIMUS
     Indication: Allogenic stem cell transplantation
     Dosage: TACROLIMUS ADJUSTED TO A CONCENTRATION OF 5 TO 15 NG/ML
     Route: 065

REACTIONS (7)
  - Sepsis [Unknown]
  - Mucosal inflammation [Unknown]
  - Cytomegalovirus infection reactivation [Unknown]
  - Systemic mycosis [Unknown]
  - Nephropathy toxic [Unknown]
  - Herpes virus infection [Unknown]
  - Cytokine release syndrome [Unknown]
